FAERS Safety Report 10287828 (Version 1)
Quarter: 2014Q3

REPORT INFORMATION
  Report Type: Spontaneous
  Country: US (occurrence: US)
  Receive Date: 20140709
  Receipt Date: 20140709
  Transmission Date: 20150326
  Serious: No
  Sender: FDA-Public Use
  Company Number: US-GILEAD-2013-0079870

PATIENT
  Sex: Female

DRUGS (1)
  1. LETAIRIS [Suspect]
     Active Substance: AMBRISENTAN
     Indication: PRODUCT USED FOR UNKNOWN INDICATION
     Dosage: 5 MG, QD

REACTIONS (7)
  - Dysgeusia [Unknown]
  - Fear of death [Unknown]
  - Unevaluable event [Unknown]
  - Peripheral swelling [Unknown]
  - Anxiety [Unknown]
  - Dyspnoea [Unknown]
  - Decreased appetite [Unknown]
